FAERS Safety Report 22170837 (Version 1)
Quarter: 2023Q2

REPORT INFORMATION
  Report Type: Spontaneous
  Country: US (occurrence: None)
  Receive Date: 20230403
  Receipt Date: 20230403
  Transmission Date: 20230721
  Serious: No
  Sender: FDA-Public Use
  Company Number: None

PATIENT
  Age: 51 Year
  Sex: Female
  Weight: 90 kg

DRUGS (5)
  1. OZEMPIC [Suspect]
     Active Substance: SEMAGLUTIDE
     Indication: Diabetes mellitus
     Dosage: OTHER FREQUENCY : ONCE A WEEK;?
     Route: 058
     Dates: start: 20230310
  2. GLIPIZIDE [Concomitant]
     Active Substance: GLIPIZIDE
  3. losaetan [Concomitant]
  4. WELLBUTRIN [Concomitant]
     Active Substance: BUPROPION HYDROCHLORIDE
  5. Astor atorvastatin [Concomitant]

REACTIONS (5)
  - Nausea [None]
  - Abdominal pain [None]
  - Eructation [None]
  - Dyspepsia [None]
  - Headache [None]

NARRATIVE: CASE EVENT DATE: 20230401
